FAERS Safety Report 5543139-X (Version None)
Quarter: 2007Q4

REPORT INFORMATION
  Report Type: 
  Country: None (occurrence: None)
  Receive Date: 20071206
  Receipt Date: 20071120
  Transmission Date: 20080405
  Serious: Yes (Congenital Anomaly)
  Sender: FDA-Public Use
  Company Number: 8024568

PATIENT
  Age: 28 Year
  Sex: Female

DRUGS (4)
  1. KEPPRA [Suspect]
     Indication: EPILEPSY
     Dosage: 2000 MG /D
  2. KEPPRA [Suspect]
     Indication: EPILEPSY
     Dosage: 3000 MG /D
  3. PRENATAL VITAMINS [Concomitant]
  4. FOLIC ACID [Concomitant]

REACTIONS (2)
  - ALCOHOL USE [None]
  - DRUG EXPOSURE DURING PREGNANCY [None]
